FAERS Safety Report 19703116 (Version 2)
Quarter: 2021Q3

REPORT INFORMATION
  Report Type: Spontaneous
  Country: US (occurrence: US)
  Receive Date: 20210816
  Receipt Date: 20210823
  Transmission Date: 20211014
  Serious: Yes (Hospitalization, Disabling, Other)
  Sender: FDA-Public Use
  Company Number: US-ORGANON-1208USA009023

PATIENT
  Sex: Female

DRUGS (11)
  1. FOSAMAX [Suspect]
     Active Substance: ALENDRONATE SODIUM
     Indication: OSTEOPENIA
     Dosage: 5 MG, UNK, TAKE ONE TABLET IN THE MORNING AS DIRECTED
     Route: 048
     Dates: start: 19980519, end: 200802
  2. ALENDRONATE SODIUM. [Suspect]
     Active Substance: ALENDRONATE SODIUM
     Indication: OSTEOPOROSIS
  3. ALENDRONATE SODIUM. [Suspect]
     Active Substance: ALENDRONATE SODIUM
     Indication: OSTEOPENIA
     Dosage: 5 MILLIGRAM
     Route: 048
     Dates: start: 200804, end: 201011
  4. VITAMINS NOS [Concomitant]
     Active Substance: VITAMINS
     Dosage: 1 DF, QD
     Route: 048
     Dates: start: 1992
  5. VITAMIN D NOS [Concomitant]
     Active Substance: VITAMIN D NOS
     Dosage: 1.25 MILLIGRAM, QM
     Route: 048
     Dates: start: 1992
  6. ALENDRONATE SODIUM. [Suspect]
     Active Substance: ALENDRONATE SODIUM
     Indication: OSTEOPENIA
     Dosage: 5 MILLIGRAM
     Route: 048
     Dates: start: 200804, end: 201011
  7. ALENDRONATE SODIUM. [Suspect]
     Active Substance: ALENDRONATE SODIUM
     Indication: OSTEOPENIA
     Dosage: 5 MILLIGRAM
     Route: 048
     Dates: start: 200804, end: 201011
  8. FOSAMAX [Suspect]
     Active Substance: ALENDRONATE SODIUM
     Indication: OSTEOPOROSIS
     Dosage: 70 MG, UNK
     Route: 048
     Dates: end: 201011
  9. ALENDRONATE SODIUM. [Suspect]
     Active Substance: ALENDRONATE SODIUM
     Indication: OSTEOPOROSIS
  10. ALENDRONATE SODIUM. [Suspect]
     Active Substance: ALENDRONATE SODIUM
     Indication: OSTEOPOROSIS
  11. CALCIUM [Concomitant]
     Active Substance: CALCIUM
     Dosage: 600 MG, UNK
     Route: 048
     Dates: start: 1992

REACTIONS (26)
  - Femur fracture [Unknown]
  - Chest injury [Unknown]
  - Osteoporosis [Unknown]
  - Spinal stenosis [Unknown]
  - Appendiceal abscess [Unknown]
  - Neuropathy peripheral [Unknown]
  - Insomnia [Unknown]
  - Vitamin D deficiency [Unknown]
  - Neuralgia [Unknown]
  - Lumbar radiculopathy [Unknown]
  - Abdominal operation [Unknown]
  - Intervertebral disc compression [Unknown]
  - Scoliosis [Unknown]
  - Bladder prolapse [Unknown]
  - Low turnover osteopathy [Not Recovered/Not Resolved]
  - Anxiety [Unknown]
  - Calcium deficiency [Unknown]
  - Bunion operation [Unknown]
  - Oestrogen deficiency [Unknown]
  - Open reduction of fracture [Unknown]
  - Hypercholesterolaemia [Unknown]
  - Wisdom teeth removal [Unknown]
  - Appendicitis perforated [Unknown]
  - Carpal tunnel decompression [Unknown]
  - Osteoarthritis [Not Recovered/Not Resolved]
  - Kyphoscoliosis [Unknown]

NARRATIVE: CASE EVENT DATE: 20050911
